FAERS Safety Report 5366818-6 (Version None)
Quarter: 2007Q2

REPORT INFORMATION
  Report Type: 
  Country: None (occurrence: None)
  Receive Date: 20070622
  Receipt Date: 20070126
  Transmission Date: 20071010
  Serious: No
  Sender: FDA-Public Use
  Company Number: A0637204A

PATIENT
  Age: 50 Year
  Sex: Female

DRUGS (7)
  1. ZYBAN [Suspect]
     Dosage: 150MG TWICE PER DAY
     Route: 048
     Dates: start: 20070119
  2. NICODERM CQ [Concomitant]
  3. PREMARIN [Concomitant]
  4. OXYCODONE HCL [Concomitant]
  5. VALIUM [Concomitant]
  6. AMBIEN [Concomitant]
  7. SINGULAIR [Concomitant]

REACTIONS (4)
  - ANXIETY [None]
  - CHEST PAIN [None]
  - INSOMNIA [None]
  - TONSILLITIS [None]
